FAERS Safety Report 8397973 (Version 3)
Quarter: 2013Q4

REPORT INFORMATION
  Report Type: Spontaneous
  Country: US (occurrence: US)
  Receive Date: 20120209
  Receipt Date: 20131106
  Transmission Date: 20140711
  Serious: Yes (Hospitalization)
  Sender: FDA-Public Use
  Company Number: US-GLAXOSMITHKLINE-A0913513A

PATIENT
  Age: 56 Year
  Sex: Female
  Weight: 113.6 kg

DRUGS (5)
  1. AVANDIA [Suspect]
     Indication: DIABETES MELLITUS
     Dosage: 4MG PER DAY
     Route: 048
     Dates: start: 200003, end: 20070103
  2. ENALAPRIL [Concomitant]
  3. NORVASC [Concomitant]
  4. DILANTIN [Concomitant]
  5. DYAZIDE [Concomitant]

REACTIONS (3)
  - Cerebrovascular accident [Unknown]
  - Transient ischaemic attack [Unknown]
  - Coronary artery disease [Unknown]
